FAERS Safety Report 10614418 (Version 1)
Quarter: 2014Q4

REPORT INFORMATION
  Report Type: Spontaneous
  Country: CA (occurrence: CA)
  Receive Date: 20141129
  Receipt Date: 20141129
  Transmission Date: 20150529
  Serious: Yes (Other)
  Sender: FDA-Public Use
  Company Number: CA-AUROBINDO-AUR-APL-2014-12565

PATIENT
  Age: 45 Year
  Sex: Female

DRUGS (2)
  1. NITROFURANTOIN. [Suspect]
     Active Substance: NITROFURANTOIN
     Indication: URINARY TRACT INFECTION
     Dosage: UNK
     Route: 065
  2. CIPROFLOXACIN. [Suspect]
     Active Substance: CIPROFLOXACIN
     Indication: URINARY TRACT INFECTION
     Dosage: UNK
     Route: 065

REACTIONS (17)
  - Acute febrile neutrophilic dermatosis [Recovered/Resolved]
  - Episcleritis [Recovered/Resolved]
  - Neutrophilia [Recovered/Resolved]
  - Nodule [Recovered/Resolved]
  - Headache [Recovered/Resolved]
  - Red blood cell sedimentation rate increased [Recovered/Resolved]
  - Leukocytosis [Recovered/Resolved]
  - Conjunctival hyperaemia [Recovered/Resolved]
  - Erythema nodosum [Recovered/Resolved]
  - Rash pustular [Recovered/Resolved]
  - Skin plaque [Recovered/Resolved]
  - C-reactive protein increased [Recovered/Resolved]
  - Panniculitis [Recovered/Resolved]
  - Arthralgia [Recovered/Resolved]
  - Oedema [Recovered/Resolved]
  - Rash [Recovered/Resolved]
  - Erythema [Recovered/Resolved]
